FAERS Safety Report 9638726 (Version 1)
Quarter: 2013Q4

REPORT INFORMATION
  Report Type: Spontaneous
  Country: US (occurrence: US)
  Receive Date: 20131022
  Receipt Date: 20131022
  Transmission Date: 20140711
  Serious: No
  Sender: FDA-Public Use
  Company Number: US-BRISTOL-MYERS SQUIBB COMPANY-19233428

PATIENT
  Sex: Female

DRUGS (10)
  1. ELIQUIS [Suspect]
  2. COUMADIN [Concomitant]
  3. METOPROLOL [Concomitant]
  4. NORVASC [Concomitant]
  5. CRESTOR [Concomitant]
  6. SYNTHROID [Concomitant]
  7. OXYBUTIN [Concomitant]
  8. BABY ASPIRIN [Concomitant]
  9. TYLENOL [Concomitant]
  10. VITAMIN D3 [Concomitant]

REACTIONS (1)
  - Headache [Unknown]
